FAERS Safety Report 10159438 (Version 3)
Quarter: 2014Q3

REPORT INFORMATION
  Report Type: Spontaneous
  Country: AT (occurrence: AT)
  Receive Date: 20140508
  Receipt Date: 20140815
  Transmission Date: 20150326
  Serious: Yes (Hospitalization)
  Sender: FDA-Public Use
  Company Number: AT-ELI_LILLY_AND_COMPANY-AT201404009897

PATIENT
  Age: 73 Year
  Sex: Female

DRUGS (22)
  1. ZYPREXA [Interacting]
     Active Substance: OLANZAPINE
     Indication: PRODUCT USED FOR UNKNOWN INDICATION
     Dosage: UNK, UNKNOWN
     Route: 065
  2. SEROQUEL [Interacting]
     Active Substance: QUETIAPINE FUMARATE
     Dosage: 150 MG, UNKNOWN
     Route: 048
     Dates: start: 20130522, end: 20130523
  3. DEPAKINE [Concomitant]
     Active Substance: VALPROATE SODIUM
     Dosage: 1200 MG, UNKNOWN
     Route: 048
     Dates: start: 20130606, end: 20130630
  4. PSYCHOPAX [Concomitant]
     Active Substance: DIAZEPAM
     Dosage: 10 MG, UNKNOWN
     Route: 048
     Dates: start: 20130519, end: 20130520
  5. XANOR [Concomitant]
     Active Substance: ALPRAZOLAM
     Indication: PRODUCT USED FOR UNKNOWN INDICATION
     Dosage: 1 MG, UNKNOWN
     Route: 048
     Dates: start: 20130427, end: 20130522
  6. ULCOGANT [Concomitant]
     Active Substance: SUCRALFATE
     Indication: PRODUCT USED FOR UNKNOWN INDICATION
     Dosage: 3000 MG, UNKNOWN
     Route: 048
     Dates: start: 20130427, end: 20130527
  7. TOLVON [Concomitant]
     Active Substance: MIANSERIN
     Indication: PRODUCT USED FOR UNKNOWN INDICATION
     Dosage: 60 MG, UNKNOWN
     Route: 048
     Dates: start: 201301, end: 20130623
  8. PANTOLOC                           /01263204/ [Concomitant]
     Active Substance: PANTOPRAZOLE SODIUM
     Indication: PRODUCT USED FOR UNKNOWN INDICATION
     Dosage: 20 MG, UNKNOWN
     Route: 048
     Dates: end: 20130707
  9. CYMBALTA [Suspect]
     Active Substance: DULOXETINE HYDROCHLORIDE
     Indication: DEPRESSION
     Dosage: 60 MG, QD
     Route: 048
     Dates: start: 201301, end: 20130619
  10. SEROQUEL [Interacting]
     Active Substance: QUETIAPINE FUMARATE
     Dosage: 150 MG, UNKNOWN
     Route: 048
     Dates: start: 20130527, end: 20130528
  11. XANOR [Concomitant]
     Active Substance: ALPRAZOLAM
     Dosage: 1.25 MG, UNKNOWN
     Route: 048
     Dates: start: 20130523, end: 20130602
  12. SEROQUEL [Interacting]
     Active Substance: QUETIAPINE FUMARATE
     Dosage: 100 MG, UNKNOWN
     Route: 048
     Dates: start: 20130523, end: 20130524
  13. SEROQUEL [Interacting]
     Active Substance: QUETIAPINE FUMARATE
     Dosage: 250 MG, UNKNOWN
     Route: 048
     Dates: start: 20130528, end: 20130529
  14. SEROQUEL [Interacting]
     Active Substance: QUETIAPINE FUMARATE
     Dosage: 300 MG, UNKNOWN
     Route: 048
     Dates: start: 20130529, end: 20130603
  15. DEPAKINE [Concomitant]
     Active Substance: VALPROATE SODIUM
     Indication: PRODUCT USED FOR UNKNOWN INDICATION
     Dosage: 900 MG, UNKNOWN
     Dates: start: 201301, end: 20130605
  16. ZOLDEM [Concomitant]
     Active Substance: ZOLPIDEM TARTRATE
     Indication: PRODUCT USED FOR UNKNOWN INDICATION
     Dosage: 10 MG, UNKNOWN
     Route: 048
     Dates: end: 20130806
  17. PSYCHOPAX [Concomitant]
     Active Substance: DIAZEPAM
     Indication: PRODUCT USED FOR UNKNOWN INDICATION
     Dosage: 20 MG, UNKNOWN
     Route: 048
     Dates: start: 20130427, end: 20130518
  18. PSYCHOPAX [Concomitant]
     Active Substance: DIAZEPAM
     Dosage: 5 MG, UNKNOWN
     Route: 048
     Dates: start: 20130520
  19. THROMBO ASS [Concomitant]
     Active Substance: ASPIRIN
     Indication: PRODUCT USED FOR UNKNOWN INDICATION
     Dosage: 100 MG, UNKNOWN
     Route: 048
     Dates: start: 20130518
  20. SEROQUEL [Interacting]
     Active Substance: QUETIAPINE FUMARATE
     Indication: DEPRESSION
     Dosage: 100 MG, UNKNOWN
     Route: 048
     Dates: start: 20130521, end: 20130522
  21. NEURONTIN [Concomitant]
     Active Substance: GABAPENTIN
     Indication: PRODUCT USED FOR UNKNOWN INDICATION
     Dosage: 600 MG, UNKNOWN
     Route: 048
     Dates: start: 201301, end: 20130609
  22. EUTHYROX [Concomitant]
     Active Substance: LEVOTHYROXINE SODIUM
     Indication: PRODUCT USED FOR UNKNOWN INDICATION
     Dosage: 50 UG, UNKNOWN
     Route: 048
     Dates: end: 20130713

REACTIONS (5)
  - Mouth ulceration [Recovered/Resolved]
  - Drug interaction [Recovered/Resolved]
  - Drug ineffective [Unknown]
  - Dry mouth [Recovered/Resolved]
  - Fatigue [Unknown]

NARRATIVE: CASE EVENT DATE: 20130523
